FAERS Safety Report 18366531 (Version 2)
Quarter: 2020Q4

REPORT INFORMATION
  Report Type: Spontaneous
  Country: JP (occurrence: JP)
  Receive Date: 20201009
  Receipt Date: 20201015
  Transmission Date: 20210114
  Serious: Yes (Hospitalization)
  Sender: FDA-Public Use
  Company Number: JP-PFIZER INC-2020377996

PATIENT
  Age: 82 Year
  Sex: Female
  Weight: 70 kg

DRUGS (12)
  1. INISYNC [Concomitant]
     Active Substance: ALOGLIPTIN BENZOATE\METFORMIN HYDROCHLORIDE
     Dosage: UNK
  2. RIMATIL [Concomitant]
     Active Substance: BUCILLAMINE
     Dosage: UNK
  3. TAKECAB [Concomitant]
     Active Substance: VONOPRAZAN FUMARATE
     Dosage: UNK
  4. ADALAT CC [Concomitant]
     Active Substance: NIFEDIPINE
     Dosage: UNK
  5. NITOROL R [Concomitant]
     Active Substance: ISOSORBIDE DINITRATE
     Dosage: UNK
  6. AMARYL [Concomitant]
     Active Substance: GLIMEPIRIDE
     Dosage: UNK
  7. AZILVA [Concomitant]
     Active Substance: AZILSARTAN KAMEDOXOMIL
     Dosage: UNK
  8. BAYASPIRIN [Concomitant]
     Active Substance: ASPIRIN
     Dosage: UNK
  9. EFIENT [Concomitant]
     Active Substance: PRASUGREL HYDROCHLORIDE
     Dosage: UNK
  10. EPADEL-S [Concomitant]
     Active Substance: ICOSAPENT ETHYL
     Dosage: UNK
  11. SAIREITO [ALISMA PLANTAGO-AQUATICA VAR. ORIENT. TUBER;ATRACTYLODES LAN [Concomitant]
     Dosage: UNK, 2X/DAY
     Dates: start: 20200817
  12. ALDACTONE A 50MG [Suspect]
     Active Substance: SPIRONOLACTONE
     Indication: OEDEMA PERIPHERAL
     Dosage: 50 MG, 1X/DAY
     Route: 048
     Dates: start: 20200806, end: 20200827

REACTIONS (2)
  - Dizziness [Recovered/Resolved]
  - Blood potassium increased [Recovered/Resolved]

NARRATIVE: CASE EVENT DATE: 20200828
